FAERS Safety Report 19685281 (Version 1)
Quarter: 2021Q3

REPORT INFORMATION
  Report Type: Spontaneous
  Country: US (occurrence: US)
  Receive Date: 20210811
  Receipt Date: 20210811
  Transmission Date: 20211014
  Serious: No
  Sender: FDA-Public Use
  Company Number: None

PATIENT
  Age: 39 Year
  Sex: Female

DRUGS (1)
  1. REGEN?COV [Suspect]
     Active Substance: CASIRIVIMAB\IMDEVIMAB
     Indication: COVID-19
     Route: 041
     Dates: start: 20210720, end: 20210720

REACTIONS (11)
  - Pharyngeal swelling [None]
  - Infusion related reaction [None]
  - Anaphylactic reaction [None]
  - Dizziness [None]
  - Vomiting [None]
  - Flushing [None]
  - Dyspnoea [None]
  - Nausea [None]
  - Chest discomfort [None]
  - Throat irritation [None]
  - Feeling hot [None]

NARRATIVE: CASE EVENT DATE: 20210720
